FAERS Safety Report 5030454-1 (Version None)
Quarter: 2006Q2

REPORT INFORMATION
  Report Type: 
  Country: None (occurrence: None)
  Receive Date: 20060614
  Receipt Date: 20060601
  Transmission Date: 20061013
  Serious: Yes (Life-Threatening)
  Sender: FDA-Public Use
  Company Number: HQWYE509823MAY06

PATIENT
  Age: 70 Year
  Sex: Male

DRUGS (1)
  1. TAZOCIN (PIPERACILLIN/TAZOBACTAM, INJECTION) [Suspect]
     Indication: PYELONEPHRITIS
     Dosage: 2.5 G 2X PER 1 DAY INTRAVENOUS
     Route: 042
     Dates: start: 20060509, end: 20060510

REACTIONS (2)
  - ANAPHYLACTOID REACTION [None]
  - ASTHMA [None]
